FAERS Safety Report 25082023 (Version 2)
Quarter: 2025Q2

REPORT INFORMATION
  Report Type: Report from Study
  Country: US (occurrence: US)
  Receive Date: 20250317
  Receipt Date: 20250406
  Transmission Date: 20250717
  Serious: No
  Sender: ROCHE
  Company Number: US-ROCHE-10000228807

PATIENT
  Age: 58 Year
  Sex: Female
  Weight: 105.69 kg

DRUGS (7)
  1. ENSPRYNG [Suspect]
     Active Substance: SATRALIZUMAB-MWGE
     Indication: Neuromyelitis optica spectrum disorder
     Route: 065
  2. ENSPRYNG [Suspect]
     Active Substance: SATRALIZUMAB-MWGE
     Route: 058
  3. ENSPRYNG [Suspect]
     Active Substance: SATRALIZUMAB-MWGE
  4. RITUXAN [Suspect]
     Active Substance: RITUXIMAB
     Indication: Neuromyelitis optica spectrum disorder
     Route: 065
  5. PREGABALIN [Concomitant]
     Active Substance: PREGABALIN
  6. DULOXETINE [Concomitant]
     Active Substance: DULOXETINE
  7. BUPROPION [Concomitant]
     Active Substance: BUPROPION

REACTIONS (2)
  - Liver injury [Not Recovered/Not Resolved]
  - Off label use [Unknown]
